FAERS Safety Report 7393200-2 (Version None)
Quarter: 2011Q2

REPORT INFORMATION
  Report Type: 
  Country: None (occurrence: None)
  Receive Date: 20110405
  Receipt Date: 20110323
  Transmission Date: 20111010
  Serious: Yes (Hospitalization, Other)
  Sender: FDA-Public Use
  Company Number: US-AMGEN-KDL440020

PATIENT
  Age: 80 Year
  Sex: Male

DRUGS (7)
  1. MEGACE [Concomitant]
  2. VITAMIN D [Concomitant]
     Dosage: 400 IU, Q8H
     Route: 048
  3. NPLATE [Suspect]
     Indication: IDIOPATHIC THROMBOCYTOPENIC PURPURA
     Dosage: 15 A?G/KG, QWK
     Dates: start: 20091130
  4. PREDNISONE [Concomitant]
  5. CALTRATE                           /00108001/ [Concomitant]
  6. CORTICOSTEROID NOS [Concomitant]
     Dosage: UNK UNK, UNK
     Dates: start: 19961029
  7. RITUXIMAB [Concomitant]
     Dosage: UNK UNK, UNK
     Dates: start: 19961029

REACTIONS (7)
  - DIZZINESS [None]
  - DIARRHOEA [None]
  - CONGESTIVE CARDIOMYOPATHY [None]
  - CHRONIC OBSTRUCTIVE PULMONARY DISEASE [None]
  - PULMONARY EMBOLISM [None]
  - VENTRICULAR TACHYCARDIA [None]
  - RENAL FAILURE ACUTE [None]
